FAERS Safety Report 17091958 (Version 7)
Quarter: 2021Q1

REPORT INFORMATION
  Report Type: Spontaneous
  Country: US (occurrence: US)
  Receive Date: 20191129
  Receipt Date: 20210318
  Transmission Date: 20210419
  Serious: Yes (Hospitalization, Other)
  Sender: FDA-Public Use
  Company Number: US-PFIZER INC-2019514447

PATIENT
  Age: 79 Year
  Sex: Female
  Weight: 68 kg

DRUGS (18)
  1. NASACORT [Concomitant]
     Active Substance: TRIAMCINOLONE ACETONIDE
     Indication: HYPERSENSITIVITY
     Dosage: UNK, AS NEEDED
  2. LYRICA [Suspect]
     Active Substance: PREGABALIN
     Indication: FIBROMYALGIA
     Dosage: 100 MG, 3X/DAY
     Route: 048
  3. LEVETIRACETAM. [Concomitant]
     Active Substance: LEVETIRACETAM
     Indication: SEIZURE
     Dosage: 500 MG, 2X/DAY
  4. WARFARIN [Concomitant]
     Active Substance: WARFARIN
     Indication: ANTICOAGULANT THERAPY
     Dosage: 2 MG, UNK
  5. CLARITONE [Concomitant]
     Active Substance: BENZALKONIUM CHLORIDE
     Indication: HYPERSENSITIVITY
     Dosage: UNK, AS NEEDED
  6. LYRICA [Suspect]
     Active Substance: PREGABALIN
     Indication: BACK PAIN
     Dosage: INCREASED DOSE
  7. LEVOTHYROXINE. [Concomitant]
     Active Substance: LEVOTHYROXINE
     Indication: HYPOTHYROIDISM
     Dosage: ^75MG^, 1X/DAY
  8. VITAMIN B12 [Concomitant]
     Active Substance: CYANOCOBALAMIN
     Dosage: ^5000 MG^, 1X/DAY
     Route: 060
  9. LIPITOR [Concomitant]
     Active Substance: ATORVASTATIN CALCIUM
     Indication: BLOOD CHOLESTEROL INCREASED
     Dosage: 40 MG, 1X/DAY (1 AT 11 PM)
  10. MELATONIN [Concomitant]
     Active Substance: MELATONIN
     Indication: SLEEP DISORDER
     Dosage: 5 MG, 1X/DAY (1 AT 11 PM)
  11. SPIRONOLACTONE. [Concomitant]
     Active Substance: SPIRONOLACTONE
     Indication: SWELLING
     Dosage: 25 MG, AS NEEDED
  12. LYRICA [Suspect]
     Active Substance: PREGABALIN
     Dosage: 150 MG, 3 TIMES A DAY
     Route: 048
  13. TOVIAZ [Concomitant]
     Active Substance: FESOTERODINE FUMARATE
     Indication: HYPERTONIC BLADDER
     Dosage: 8 MG, 1X/DAY (1 AT 11 PM)
  14. VITAMIN B?COMPLEX WITH VITAMIN C [ASCORBIC ACID;BIOTIN;CALCIUM PANTOTH [Concomitant]
     Dosage: UNK UNK, 1X/DAY
  15. ZINC. [Concomitant]
     Active Substance: ZINC
     Indication: IMMUNE SYSTEM DISORDER
     Dosage: 50 MG, 1X/DAY
  16. TYLENOL [Concomitant]
     Active Substance: ACETAMINOPHEN
     Indication: BACK PAIN
     Dosage: 500 MG, 3X/DAY
  17. TRAMADOL. [Concomitant]
     Active Substance: TRAMADOL
     Indication: BACK PAIN
     Dosage: ^500 MG^, 3X/DAY
  18. KEFLEX [Concomitant]
     Active Substance: CEPHALEXIN
     Indication: TRIGONITIS
     Dosage: 500 MG, 1X/DAY (1 AM DAILY)

REACTIONS (13)
  - Loss of consciousness [Unknown]
  - Malaise [Unknown]
  - Contusion [Unknown]
  - Seizure [Unknown]
  - Concussion [Unknown]
  - Cerebral haemorrhage [Unknown]
  - Neuropathy peripheral [Unknown]
  - Nausea [Unknown]
  - Vomiting [Unknown]
  - Head injury [Unknown]
  - Diarrhoea [Unknown]
  - Fall [Unknown]
  - Gait inability [Unknown]
